FAERS Safety Report 6910359-9 (Version None)
Quarter: 2010Q3

REPORT INFORMATION
  Report Type: 
  Country: None (occurrence: None)
  Receive Date: 20100806
  Receipt Date: 20100726
  Transmission Date: 20110219
  Serious: Yes (Hospitalization)
  Sender: FDA-Public Use
  Company Number: US-JNJFOC-20100708008

PATIENT
  Sex: Female
  Weight: 52.16 kg

DRUGS (21)
  1. REMICADE [Suspect]
     Indication: CROHN'S DISEASE
     Route: 042
  2. HUMIRA [Suspect]
     Indication: CROHN'S DISEASE
  3. PROBIOTIC [Concomitant]
  4. ULTIMATE FLORA [Concomitant]
  5. ERGOCALCIFEROL [Concomitant]
  6. TOCOPHERYL ACETATE [Concomitant]
  7. CHROMIUM PICOLINATE [Concomitant]
  8. PANTOTHENIC ACID [Concomitant]
  9. MINERALS NOS [Concomitant]
  10. ABSORBATENE [Concomitant]
  11. BETACAROTENE [Concomitant]
  12. CALCIUM [Concomitant]
  13. UBIDECARENONE [Concomitant]
  14. ASCORBIC ACID [Concomitant]
  15. GAMOLENIC ACID [Concomitant]
  16. GLUCOSAMINE [Concomitant]
  17. VITIS VINIFERA SEED [Concomitant]
  18. MANGANESE [Concomitant]
  19. LIPITAC [Concomitant]
  20. NEUROBION [Concomitant]
  21. VIGRAN [Concomitant]

REACTIONS (4)
  - INTRACRANIAL HYPOTENSION [None]
  - MENINGITIS [None]
  - PYREXIA [None]
  - RED BLOOD CELLS CSF POSITIVE [None]
